FAERS Safety Report 24196709 (Version 1)
Quarter: 2024Q3

REPORT INFORMATION
  Report Type: Spontaneous
  Country: US (occurrence: US)
  Receive Date: 20240810
  Receipt Date: 20240810
  Transmission Date: 20241017
  Serious: Yes (Hospitalization, Other)
  Sender: TEVA
  Company Number: US-TEVA-VS-3228974

PATIENT
  Age: 75 Year
  Sex: Male
  Weight: 84.37 kg

DRUGS (3)
  1. AUSTEDO [Suspect]
     Active Substance: DEUTETRABENAZINE
     Indication: Huntington^s disease
     Route: 065
     Dates: start: 20240516
  2. AUSTEDO [Suspect]
     Active Substance: DEUTETRABENAZINE
     Indication: Huntington^s disease
     Route: 065
  3. AUSTEDO [Suspect]
     Active Substance: DEUTETRABENAZINE
     Indication: Huntington^s disease
     Route: 065
     Dates: end: 2024

REACTIONS (11)
  - Hallucination [Unknown]
  - Wrong technique in product usage process [Unknown]
  - Drug tolerance [Unknown]
  - Rib fracture [Unknown]
  - Personality change [Unknown]
  - Loss of personal independence in daily activities [Recovering/Resolving]
  - Feeling abnormal [Unknown]
  - Aphasia [Recovering/Resolving]
  - Gait inability [Recovering/Resolving]
  - Fall [Unknown]
  - Weight decreased [Unknown]

NARRATIVE: CASE EVENT DATE: 20240101
